FAERS Safety Report 5865568-7 (Version None)
Quarter: 2008Q3

REPORT INFORMATION
  Report Type: 
  Country: None (occurrence: None)
  Receive Date: 20080829
  Receipt Date: 20080811
  Transmission Date: 20090109
  Serious: No
  Sender: FDA-Public Use
  Company Number: US-ABBOTT-08P-163-0469998-00

PATIENT
  Sex: Female

DRUGS (3)
  1. SIMCOR [Suspect]
     Indication: DRUG USE FOR UNKNOWN INDICATION
     Dosage: ONE DAILY AT BEDTIME
     Dates: start: 20080728, end: 20080809
  2. SIMCOR [Suspect]
     Dosage: TWO DAILY AT BEDTIME
     Dates: start: 20080810
  3. TOLIC [Concomitant]
     Indication: DRUG USE FOR UNKNOWN INDICATION

REACTIONS (2)
  - FLUSHING [None]
  - MUSCLE SPASMS [None]
